FAERS Safety Report 14377091 (Version 1)
Quarter: 2018Q1

REPORT INFORMATION
  Report Type: Spontaneous
  Country: US (occurrence: US)
  Receive Date: 20180111
  Receipt Date: 20180111
  Transmission Date: 20180509
  Serious: No
  Sender: FDA-Public Use
  Company Number: US-DRREDDYS-USA/USA/16/0085439

PATIENT
  Age: 50 Year
  Sex: Female
  Weight: 112.49 kg

DRUGS (3)
  1. HABITROL [Suspect]
     Active Substance: NICOTINE
     Route: 062
  2. HABITROL [Suspect]
     Active Substance: NICOTINE
     Route: 062
  3. HABITROL [Suspect]
     Active Substance: NICOTINE
     Indication: SMOKING CESSATION THERAPY
     Route: 062
     Dates: start: 201506

REACTIONS (6)
  - Product quality issue [Unknown]
  - Malaise [Recovered/Resolved]
  - Influenza like illness [Recovered/Resolved]
  - Asthenia [Recovered/Resolved]
  - Anxiety [Recovered/Resolved]
  - Incorrect dose administered [Unknown]
